FAERS Safety Report 15288635 (Version 1)
Quarter: 2018Q3

REPORT INFORMATION
  Report Type: Spontaneous
  Country: NL (occurrence: NL)
  Receive Date: 20180817
  Receipt Date: 20180817
  Transmission Date: 20181010
  Serious: Yes (Hospitalization)
  Sender: FDA-Public Use
  Company Number: NL-TEVA-2018-NL-943253

PATIENT
  Age: 49 Year
  Sex: Female
  Weight: 167 kg

DRUGS (4)
  1. OPATANOL [Concomitant]
     Active Substance: OLOPATADINE
     Route: 065
  2. FEXOFENADINE [Suspect]
     Active Substance: FEXOFENADINE\FEXOFENADINE HYDROCHLORIDE
     Indication: SEASONAL ALLERGY
     Dosage: 1 DOSAGE FORMS DAILY; 1X PER DAG 1 TABLET
     Route: 065
     Dates: start: 20180709
  3. DICLOFENAC [Concomitant]
     Active Substance: DICLOFENAC
     Route: 065
  4. FLUTICASON PROPIONAAT [Concomitant]
     Route: 065

REACTIONS (3)
  - Abdominal pain upper [Recovering/Resolving]
  - Dehydration [Recovering/Resolving]
  - Nausea [Recovering/Resolving]

NARRATIVE: CASE EVENT DATE: 20180710
